FAERS Safety Report 16988732 (Version 2)
Quarter: 2019Q4

REPORT INFORMATION
  Report Type: Spontaneous
  Country: US (occurrence: US)
  Receive Date: 20191104
  Receipt Date: 20191218
  Transmission Date: 20200122
  Serious: No
  Sender: FDA-Public Use
  Company Number: US-BEH-2019108728

PATIENT
  Sex: Female

DRUGS (21)
  1. ASPIRIN 81 [Concomitant]
     Active Substance: ASPIRIN
     Dosage: 81 MILLIGRAM
     Route: 065
  2. BENADRYL ALLERGY [CETIRIZINE HYDROCHLORIDE] [Concomitant]
     Active Substance: CETIRIZINE HYDROCHLORIDE
     Dosage: 25 MILLIGRAM
     Route: 065
  3. BUPROPION HCL [Concomitant]
     Active Substance: BUPROPION HYDROCHLORIDE
  4. LEVOTHYROXIN [Concomitant]
     Active Substance: LEVOTHYROXINE
     Dosage: 75 MICROGRAM
     Route: 065
  5. MS CONTIN [Concomitant]
     Active Substance: MORPHINE SULFATE
     Dosage: 30 UNK
     Route: 065
  6. HIZENTRA [Suspect]
     Active Substance: HUMAN IMMUNOGLOBULIN G
     Indication: SELECTIVE IGG SUBCLASS DEFICIENCY
     Dosage: 12 GRAM, QW
     Route: 058
     Dates: start: 201906
  7. LASIX [Concomitant]
     Active Substance: FUROSEMIDE
     Dosage: 20 MILLIGRAM
     Route: 065
  8. AMITRIPTYLIN [Concomitant]
     Active Substance: AMITRIPTYLINE
     Dosage: 25 MILLIGRAM
     Route: 065
  9. LANTUS [Concomitant]
     Active Substance: INSULIN GLARGINE
     Dosage: 100 INTERNATIONAL UNIT PER MILLILITRE
     Route: 065
  10. PREDNISONE. [Concomitant]
     Active Substance: PREDNISONE
     Dosage: 20 MILLIGRAM
     Route: 065
  11. CLONAZEPAM. [Concomitant]
     Active Substance: CLONAZEPAM
     Dosage: 0.5 MILLIGRAM
     Route: 065
  12. COREG [Concomitant]
     Active Substance: CARVEDILOL
     Dosage: 25 MILLIGRAM
  13. LIPITOR [Concomitant]
     Active Substance: ATORVASTATIN CALCIUM
     Dosage: 40 MILLIGRAM
     Route: 065
  14. SERTRALINE HCL [Concomitant]
     Active Substance: SERTRALINE HYDROCHLORIDE
  15. MULTIVITAMINS [VITAMINS NOS] [Concomitant]
     Active Substance: VITAMINS
  16. NOVOLOG [Concomitant]
     Active Substance: INSULIN ASPART
     Dosage: 100 INTERNATIONAL UNIT PER MILLILITRE
     Route: 065
  17. TELMISARTAN. [Concomitant]
     Active Substance: TELMISARTAN
     Dosage: 80 MILLIGRAM
     Route: 065
  18. GABAPENTIN. [Concomitant]
     Active Substance: GABAPENTIN
  19. IRON [Concomitant]
     Active Substance: IRON
     Dosage: 28 MILLIGRAM
     Route: 065
  20. MS CONTIN [Concomitant]
     Active Substance: MORPHINE SULFATE
     Dosage: 15 MILLIGRAM
     Route: 065
  21. VITAMIN C [Concomitant]
     Active Substance: ASCORBIC ACID

REACTIONS (1)
  - Injection site erythema [Recovered/Resolved]
